FAERS Safety Report 25355547 (Version 1)
Quarter: 2025Q2

REPORT INFORMATION
  Report Type: Spontaneous
  Country: CH (occurrence: CH)
  Receive Date: 20250525
  Receipt Date: 20250525
  Transmission Date: 20250717
  Serious: Yes (Hospitalization, Other)
  Sender: BRISTOL-MYERS SQUIBB COMPANY
  Company Number: None

PATIENT
  Age: 86 Year
  Sex: Female
  Weight: 88 kg

DRUGS (18)
  1. ELIQUIS [Suspect]
     Active Substance: APIXABAN
     Indication: Atrial fibrillation
     Dosage: 1-0-1-0
     Route: 048
     Dates: start: 20190203
  2. LEVOFLOXACIN [Suspect]
     Active Substance: LEVOFLOXACIN
     Indication: Pneumonia
     Route: 048
     Dates: start: 20250422, end: 20250423
  3. ALBUTEROL SULFATE\IPRATROPIUM BROMIDE [Concomitant]
     Active Substance: ALBUTEROL SULFATE\IPRATROPIUM BROMIDE
     Indication: Product used for unknown indication
     Dosage: 1 DOSAGE FORM CONTAINS 0,5MG SALBUTAMOL AND 2,5MG IPRATROPIUMBROMIDE. 1-1-1-1
     Route: 055
     Dates: start: 20250419
  4. PANTOPRAZOLE SODIUM [Concomitant]
     Active Substance: PANTOPRAZOLE SODIUM
     Indication: Product used for unknown indication
     Dosage: PROTON PUMP INHIBITION IN CASE OF DRUG RISK (OAK) AND AGE. 1-0-0-0
     Route: 048
     Dates: start: 20190203
  5. ESCITALOPRAM OXALATE [Concomitant]
     Active Substance: ESCITALOPRAM OXALATE
     Indication: Product used for unknown indication
     Dosage: 1-0-0-0
     Route: 048
     Dates: start: 2021
  6. TORSEMIDE [Concomitant]
     Active Substance: TORSEMIDE
     Indication: Cardiac failure
     Dosage: BUT CONTRADICTORY INFORMATION REGARDING THE PERIOD. 0.25-0-0.25-0
     Route: 048
     Dates: start: 20250422, end: 20250429
  7. HUMALOG [Concomitant]
     Active Substance: INSULIN LISPRO
     Indication: Hyperglycaemia
     Route: 058
     Dates: start: 20250419, end: 20250429
  8. ALLOPURINOL [Concomitant]
     Active Substance: ALLOPURINOL
     Indication: Gout
     Dosage: 1-0-0-0
     Route: 048
     Dates: start: 2021
  9. LASIX [Concomitant]
     Active Substance: FUROSEMIDE
     Indication: Cardiac failure
     Dosage: INJECTION LOOSE. 20 MG/2ML IV ADMINISTRATION OF 40MG IN THE MORNING, 20MG AT NOON
     Route: 042
     Dates: start: 20250405
  10. BISOPROLOL MEPHA [Concomitant]
     Indication: Cardiac failure
     Dosage: 1.5-0-0-0
     Route: 048
     Dates: start: 20250101
  11. JARDIANCE [Concomitant]
     Active Substance: EMPAGLIFLOZIN
     Indication: Product used for unknown indication
     Dosage: SLOWING PROGRESSION NI. 1-0-0-0
     Route: 048
     Dates: start: 20250418, end: 20250419
  12. METOLAZONE [Concomitant]
     Active Substance: METOLAZONE
     Indication: Product used for unknown indication
     Dates: start: 20250405, end: 20250417
  13. METOLAZONE [Concomitant]
     Active Substance: METOLAZONE
     Dates: start: 20250424, end: 20250428
  14. MIRABEGRON [Concomitant]
     Active Substance: MIRABEGRON
     Indication: Product used for unknown indication
     Dosage: 1-0-0-0
     Route: 048
     Dates: start: 20250101
  15. POTASSIUM CHLORIDE [Concomitant]
     Active Substance: POTASSIUM CHLORIDE
     Indication: Hypokalaemia
     Dosage: 1 TABLET CONTAINS 10MMOL POTASSIUM CHLORIDE RETARD. 2-2-2-2
     Route: 048
     Dates: start: 20250405
  16. MAGNESIUM ASPARTATE [Concomitant]
     Active Substance: MAGNESIUM ASPARTATE
     Indication: Hypomagnesaemia
     Dosage: 1-0-0-0
     Route: 048
     Dates: start: 20250409
  17. ATORVASTATIN CALCIUM [Concomitant]
     Active Substance: ATORVASTATIN CALCIUM
     Indication: Product used for unknown indication
     Dosage: 0-0-1-0
     Route: 048
     Dates: start: 2021
  18. METOCLOPRAMIDE HYDROCHLORIDE [Concomitant]
     Active Substance: METOCLOPRAMIDE HYDROCHLORIDE
     Indication: Nausea
     Route: 048
     Dates: start: 20250419, end: 20250419

REACTIONS (4)
  - Transient ischaemic attack [Recovered/Resolved]
  - Pneumonia [Unknown]
  - Psychotic disorder [Unknown]
  - Stasis dermatitis [Unknown]

NARRATIVE: CASE EVENT DATE: 20250419
